FAERS Safety Report 19078750 (Version 1)
Quarter: 2021Q1

REPORT INFORMATION
  Report Type: Spontaneous
  Country: US (occurrence: US)
  Receive Date: 20210331
  Receipt Date: 20210331
  Transmission Date: 20210420
  Serious: Yes (Life-Threatening, Other)
  Sender: FDA-Public Use
  Company Number: US-PFIZER INC-87042710-U

PATIENT
  Age: 60 Year
  Sex: Male
  Weight: 92 kg

DRUGS (21)
  1. VERAPAMIL HCL [Interacting]
     Active Substance: VERAPAMIL HYDROCHLORIDE
     Dosage: 80 MG
  2. INSULIN [Concomitant]
     Active Substance: INSULIN NOS
     Dosage: UNK
  3. NPH INSULIN [Concomitant]
     Active Substance: INSULIN BEEF
     Dosage: 20 UNITS
  4. DEXTROSE. [Concomitant]
     Active Substance: DEXTROSE
     Dosage: ON THE NIGHT BEFORE SURGERY AT 75 ML/H
  5. DIAZEPAM. [Concomitant]
     Active Substance: DIAZEPAM
     Indication: ANXIETY
     Dosage: 10 MG, 3X/DAY
     Route: 048
  6. RANITIDINE. [Concomitant]
     Active Substance: RANITIDINE
     Dosage: RANITIDINE 150 MG AT BEDTIME
  7. FENTANYL. [Concomitant]
     Active Substance: FENTANYL
     Indication: ANAESTHESIA
     Dosage: 33 UG/KG
     Route: 042
  8. VERAPAMIL HCL [Suspect]
     Active Substance: VERAPAMIL HYDROCHLORIDE
     Indication: ILL-DEFINED DISORDER
     Dosage: 80 MG, 3X/DAY
     Route: 048
  9. MORPHINE [Concomitant]
     Active Substance: MORPHINE
     Dosage: 10 MG
     Route: 030
  10. NIFEDIPINE. [Concomitant]
     Active Substance: NIFEDIPINE
     Dosage: UNK
  11. SALINE [BORIC ACID] [Concomitant]
     Dosage: UNK
  12. HETASTARCH. [Concomitant]
     Active Substance: HETASTARCH
     Dosage: 500 ML
  13. TRANSDERM?NITRO [Concomitant]
     Dosage: 10 MG, DAILY
  14. OXYGEN. [Concomitant]
     Active Substance: OXYGEN
     Indication: MECHANICAL VENTILATION
     Dosage: UNK
  15. METOCLOPRAMIDE. [Concomitant]
     Active Substance: METOCLOPRAMIDE
     Dosage: 10 MG
  16. TRANSDERM?NITRO [Concomitant]
     Dosage: 10 MG
  17. DIAZEPAM. [Concomitant]
     Active Substance: DIAZEPAM
     Dosage: 15 MG
  18. CRONOVERA [Interacting]
     Active Substance: VERAPAMIL HYDROCHLORIDE
     Indication: ANGINA PECTORIS
     Dosage: 240MG
     Route: 048
     Dates: start: 1985
  19. DANTROLENE. [Interacting]
     Active Substance: DANTROLENE SODIUM
     Dosage: 2.4 MG/KG
     Route: 042
  20. RANITIDINE. [Concomitant]
     Active Substance: RANITIDINE
     Dosage: 150 MG
     Route: 048
  21. ATRACURIUM [Concomitant]
     Active Substance: ATRACURIUM
     Indication: ANAESTHESIA
     Dosage: 50 MG

REACTIONS (4)
  - Metabolic acidosis [Recovered/Resolved]
  - Drug interaction [Unknown]
  - Hyperkalaemia [Recovered/Resolved]
  - Cardiac failure [Recovered/Resolved]
